FAERS Safety Report 13106159 (Version 3)
Quarter: 2017Q2

REPORT INFORMATION
  Report Type: Spontaneous
  Country: US (occurrence: US)
  Receive Date: 20170111
  Receipt Date: 20170421
  Transmission Date: 20170830
  Serious: Yes (Hospitalization)
  Sender: FDA-Public Use
  Company Number: US-PFIZER INC-2017011915

PATIENT
  Age: 77 Year
  Sex: Female

DRUGS (4)
  1. PREMPRO [Suspect]
     Active Substance: ESTROGENS, CONJUGATED\MEDROXYPROGESTERONE ACETATE
     Indication: HYPERHIDROSIS
     Dosage: 1 DF (0.45/1.5 MG), 1X/DAY (AT NIGHT)
     Dates: start: 1952
  2. PREMPRO [Suspect]
     Active Substance: ESTROGENS, CONJUGATED\MEDROXYPROGESTERONE ACETATE
     Indication: HOT FLUSH
  3. PREMPRO [Suspect]
     Active Substance: ESTROGENS, CONJUGATED\MEDROXYPROGESTERONE ACETATE
     Indication: INSOMNIA
  4. TYLENOL [Concomitant]
     Active Substance: ACETAMINOPHEN
     Dosage: UNK
     Dates: start: 1959

REACTIONS (3)
  - Feeling abnormal [Recovered/Resolved]
  - Anaemia [Recovered/Resolved]
  - Drug ineffective [Not Recovered/Not Resolved]
